FAERS Safety Report 24591300 (Version 1)
Quarter: 2024Q4

REPORT INFORMATION
  Report Type: Spontaneous
  Country: US (occurrence: US)
  Receive Date: 20241108
  Receipt Date: 20241108
  Transmission Date: 20250115
  Serious: Yes (Death, Hospitalization, Other)
  Sender: AMGEN
  Company Number: US-AMGEN-USASP2024214782

PATIENT
  Age: 57 Year
  Sex: Female

DRUGS (3)
  1. BEVACIZUMAB [Suspect]
     Active Substance: BEVACIZUMAB
     Indication: Vaginal cancer stage III
     Dosage: UNK
     Route: 065
  2. CARBOPLATIN [Concomitant]
     Active Substance: CARBOPLATIN
     Indication: Vaginal cancer stage III
  3. PACLITAXEL [Concomitant]
     Active Substance: PACLITAXEL
     Indication: Vaginal cancer stage III

REACTIONS (13)
  - Death [Fatal]
  - Vaginal cancer recurrent [Unknown]
  - Nutritional condition abnormal [Unknown]
  - Respiratory failure [Unknown]
  - Small intestinal obstruction [Unknown]
  - Pulmonary embolism [Unknown]
  - Hypothyroidism [Unknown]
  - Immune-mediated myasthenia gravis [Not Recovered/Not Resolved]
  - Immune-mediated myocarditis [Unknown]
  - Weaning failure [Recovered/Resolved]
  - Refusal of treatment by patient [Unknown]
  - Off label use [Unknown]
  - Hypertransaminasaemia [Unknown]
